FAERS Safety Report 24676004 (Version 1)
Quarter: 2024Q4

REPORT INFORMATION
  Report Type: Report from Study
  Country: US (occurrence: US)
  Receive Date: 20241128
  Receipt Date: 20241128
  Transmission Date: 20250115
  Serious: Yes (Hospitalization, Other)
  Sender: HLS THERAPEUTICS
  Company Number: US-HLS-202401540

PATIENT
  Age: 74 Year
  Sex: Male

DRUGS (1)
  1. CLOZAPINE [Suspect]
     Active Substance: CLOZAPINE
     Indication: Product used for unknown indication
     Dosage: 100MG ORAL TABLETS
     Route: 048

REACTIONS (4)
  - Hypercapnia [Unknown]
  - Seizure [Unknown]
  - Vitamin B12 deficiency [Unknown]
  - Asthenia [Unknown]
